FAERS Safety Report 6132814-4 (Version None)
Quarter: 2009Q1

REPORT INFORMATION
  Report Type: 
  Country: None (occurrence: None)
  Receive Date: 20090325
  Receipt Date: 20090325
  Transmission Date: 20090719
  Serious: Yes (Hospitalization)
  Sender: FDA-Public Use
  Company Number: None

PATIENT
  Age: 58 Year
  Sex: Male

DRUGS (5)
  1. SUNITINIB 12.5 + 25 MG TABLETS [Suspect]
     Indication: METASTATIC RENAL CELL CARCINOMA
     Dosage: 37 MG DAILY PO
     Route: 048
     Dates: start: 20070611, end: 20070710
  2. RADIATION 35 GY [Suspect]
     Dosage: 2.5 GY M-F 3 WEEKS
     Dates: start: 20070611, end: 20070628
  3. OXYCONTIN [Concomitant]
  4. PERCOCET [Concomitant]
  5. DEXAMETHASONE [Concomitant]

REACTIONS (8)
  - ARACHNOIDITIS [None]
  - ASTHENIA [None]
  - DISEASE PROGRESSION [None]
  - HAEMOGLOBIN DECREASED [None]
  - NAUSEA [None]
  - PAIN [None]
  - SPINAL CORD COMPRESSION [None]
  - VOMITING [None]
